FAERS Safety Report 7227440-X (Version None)
Quarter: 2011Q1

REPORT INFORMATION
  Report Type: 
  Country: None (occurrence: None)
  Receive Date: 20110114
  Receipt Date: 20110110
  Transmission Date: 20110831
  Serious: Yes (Life-Threatening, Hospitalization)
  Sender: FDA-Public Use
  Company Number: PT-BRACCO-000011

PATIENT
  Sex: Female
  Weight: 75 kg

DRUGS (1)
  1. MULTIHANCE [Suspect]
     Indication: NUCLEAR MAGNETIC RESONANCE IMAGING BRAIN
     Route: 042
     Dates: start: 20101217, end: 20101217

REACTIONS (3)
  - LARYNGEAL OEDEMA [None]
  - FLUSHING [None]
  - DYSPNOEA [None]
